FAERS Safety Report 8604667-3 (Version None)
Quarter: 2012Q2

REPORT INFORMATION
  Report Type: 
  Country: None (occurrence: None)
  Receive Date: 20120423
  Receipt Date: 20091120
  Transmission Date: 20120825
  Serious: Yes (Death, Hospitalization)
  Sender: FDA-Public Use
  Company Number: PHEH2009US00542

PATIENT
  Age: 75 Year
  Sex: Female
  Weight: 80.4 kg

DRUGS (4)
  1. MAGNESIUM (MAGNESIUM) [Concomitant]
  2. COQ10 (UBIDECARENONE) [Concomitant]
  3. FEMARA [Suspect]
     Indication: BREAST CANCER
     Dosage: 2.5 MG, QD, ORAL
     Route: 048
     Dates: start: 20080125
  4. TOPROL-XL [Concomitant]

REACTIONS (11)
  - FATIGUE [None]
  - BEDRIDDEN [None]
  - PAIN [None]
  - HAEMOPTYSIS [None]
  - LUNG ADENOCARCINOMA [None]
  - EMBOLISM ARTERIAL [None]
  - SWELLING [None]
  - WEIGHT INCREASED [None]
  - GENERAL PHYSICAL HEALTH DETERIORATION [None]
  - NON-SMALL CELL LUNG CANCER [None]
  - OROPHARYNGEAL PAIN [None]
